FAERS Safety Report 20054438 (Version 2)
Quarter: 2021Q4

REPORT INFORMATION
  Report Type: Spontaneous
  Country: JP (occurrence: JP)
  Receive Date: 20211110
  Receipt Date: 20211207
  Transmission Date: 20220303
  Serious: Yes (Hospitalization, Other)
  Sender: FDA-Public Use
  Company Number: JP-MSD-M2021-26454

PATIENT
  Age: 84 Year
  Sex: Female

DRUGS (5)
  1. BELSOMRA [Suspect]
     Active Substance: SUVOREXANT
     Indication: Insomnia
     Dosage: 15 MG ONCE/DAY
     Route: 048
     Dates: start: 20211022, end: 20211023
  2. EDOXABAN TOSYLATE [Suspect]
     Active Substance: EDOXABAN TOSYLATE
     Dosage: 60 MILLIGRAM
     Route: 065
     Dates: start: 201801
  3. DIOVAN [Concomitant]
     Active Substance: VALSARTAN
     Dosage: 40 MILLIGRAM
     Route: 065
     Dates: start: 20090516
  4. LIPITOR [Concomitant]
     Active Substance: ATORVASTATIN CALCIUM
     Dosage: 10 MILLIGRAM
     Route: 065
     Dates: start: 20090218
  5. BISOPROLOL FUMARATE [Concomitant]
     Active Substance: BISOPROLOL FUMARATE
     Dosage: 0.625 MILLIGRAM
     Route: 065

REACTIONS (8)
  - Mouth haemorrhage [Recovering/Resolving]
  - Haematuria [Not Recovered/Not Resolved]
  - Haemorrhage subcutaneous [Recovering/Resolving]
  - Melaena [Recovering/Resolving]
  - Urinary bladder haemorrhage [Unknown]
  - Urinary retention [Unknown]
  - Device occlusion [Unknown]
  - Pyrexia [Unknown]

NARRATIVE: CASE EVENT DATE: 20210101
